FAERS Safety Report 9758948 (Version 1)
Quarter: 2013Q4

REPORT INFORMATION
  Report Type: Spontaneous
  Country: US (occurrence: None)
  Receive Date: 20131216
  Receipt Date: 20131216
  Transmission Date: 20140711
  Serious: Yes (Other)
  Sender: FDA-Public Use
  Company Number: 2012050077(0)

PATIENT
  Sex: Female

DRUGS (3)
  1. ROWASA [Suspect]
     Indication: COLITIS ULCERATIVE
  2. MESALAZINE [Suspect]
     Indication: COLITIS ULCERATIVE
  3. PROTONIX [Suspect]
     Indication: GASTROOESOPHAGEAL REFLUX DISEASE
     Dosage: 40 MG (40 MG, 1 IN 1 D)?

REACTIONS (1)
  - Colitis ulcerative [None]
